FAERS Safety Report 9548143 (Version 1)
Quarter: 2013Q3

REPORT INFORMATION
  Report Type: Spontaneous
  Country: DE (occurrence: None)
  Receive Date: 20130920
  Receipt Date: 20130920
  Transmission Date: 20140515
  Serious: Yes (Other)
  Sender: FDA-Public Use
  Company Number: NGX_01968_2013

PATIENT
  Age: 50 Year
  Sex: Male
  Weight: 78 kg

DRUGS (4)
  1. QUTENZA [Suspect]
     Indication: NEURALGIA
     Dosage: (0.5 DF, [PATCH, APPLIED TO THE LOWER LEG/TIBIA] TOPICAL)
     Route: 061
     Dates: start: 20130910, end: 20130910
  2. TRAMAL [Concomitant]
  3. VERSATIS [Concomitant]
  4. METAMIZOLE [Concomitant]

REACTIONS (7)
  - Application site pain [None]
  - Urticaria [None]
  - Pruritus [None]
  - Lip swelling [None]
  - Cough [None]
  - Dyspnoea [None]
  - Urticaria [None]
